FAERS Safety Report 8914507 (Version 3)
Quarter: 2013Q1

REPORT INFORMATION
  Report Type: Spontaneous
  Country: GB (occurrence: GB)
  Receive Date: 20121117
  Receipt Date: 20130301
  Transmission Date: 20140127
  Serious: Yes (Death)
  Sender: FDA-Public Use
  Company Number: GB-VERTEX PHARMACEUTICAL INC.-2012-023637

PATIENT
  Age: 51 Year
  Sex: Male

DRUGS (5)
  1. INCIVO [Suspect]
     Indication: HEPATITIS C
     Dosage: UNK
     Route: 048
     Dates: end: 20120904
  2. PEG INTERFERON [Suspect]
     Indication: HEPATITIS C
     Dosage: DOSAGE FORM: UNSPECIFIED
     Route: 058
     Dates: start: 20120611, end: 20121022
  3. RIBAVIRIN [Suspect]
     Indication: HEPATITIS C
     Dosage: DOSAGE FORM: UNSPECIFIED
     Route: 065
     Dates: start: 20120612
  4. CITALOPRAM [Concomitant]
     Indication: DEPRESSION
     Dosage: UNK
     Route: 065
  5. CITALOPRAM [Concomitant]
     Dosage: DOSAGE FORM: UNKNOWN

REACTIONS (2)
  - Sudden death [Fatal]
  - Cardiomegaly [Unknown]
